FAERS Safety Report 7779195-8 (Version None)
Quarter: 2011Q3

REPORT INFORMATION
  Report Type: 
  Country: None (occurrence: None)
  Receive Date: 20110926
  Receipt Date: 20110914
  Transmission Date: 20111222
  Serious: Yes (Hospitalization)
  Sender: FDA-Public Use
  Company Number: US-ELI_LILLY_AND_COMPANY-US201107007636

PATIENT
  Sex: Female
  Weight: 216 kg

DRUGS (15)
  1. OLANZAPINE [Suspect]
     Indication: SCHIZOPHRENIA
     Dosage: UNK
     Route: 030
     Dates: start: 20101018, end: 20101117
  2. OLANZAPINE [Suspect]
     Dosage: UNK
     Route: 030
     Dates: start: 20110113, end: 20110208
  3. OLANZAPINE [Suspect]
     Dosage: UNK
     Route: 030
     Dates: start: 20110209, end: 20110309
  4. OLANZAPINE [Suspect]
     Dosage: UNK
     Route: 030
     Dates: start: 20101216, end: 20110112
  5. OLANZAPINE [Suspect]
     Dosage: UNK
     Route: 030
     Dates: start: 20110310, end: 20110405
  6. OLANZAPINE [Suspect]
     Dosage: UNK
     Route: 030
     Dates: start: 20110406, end: 20110503
  7. OLANZAPINE [Suspect]
     Dosage: UNK
     Route: 030
     Dates: start: 20110629, end: 20110726
  8. OLANZAPINE [Suspect]
     Dosage: UNK
     Route: 030
     Dates: start: 20110602, end: 20110628
  9. OLANZAPINE [Suspect]
     Dosage: UNK
     Route: 030
     Dates: start: 20110830
  10. ATIVAN [Concomitant]
     Dosage: 0.5 MG, BID
  11. DEPAKOTE ER [Concomitant]
     Dosage: 1000 MG, EACH EVENING
     Route: 048
  12. OLANZAPINE [Suspect]
     Dosage: UNK
     Route: 030
     Dates: start: 20101118, end: 20101215
  13. OLANZAPINE [Suspect]
     Dosage: UNK
     Route: 030
     Dates: start: 20110504, end: 20110601
  14. COGENTIN [Concomitant]
     Dosage: 2 MG, BID
     Route: 048
  15. OLANZAPINE [Suspect]
     Dosage: UNK
     Route: 030
     Dates: start: 20110727

REACTIONS (7)
  - SEDATION [None]
  - DISORIENTATION [None]
  - DIZZINESS [None]
  - HYPOTENSION [None]
  - CONFUSIONAL STATE [None]
  - DEPRESSED LEVEL OF CONSCIOUSNESS [None]
  - ASTHENIA [None]
